FAERS Safety Report 8606282-4 (Version None)
Quarter: 2012Q3

REPORT INFORMATION
  Report Type: 
  Country: None (occurrence: None)
  Receive Date: 20120820
  Receipt Date: 20120815
  Transmission Date: 20120928
  Serious: Yes (Hospitalization)
  Sender: FDA-Public Use
  Company Number: US-ROCHE-1102650

PATIENT
  Sex: Female

DRUGS (1)
  1. RITUXAN [Suspect]
     Indication: RHEUMATOID ARTHRITIS

REACTIONS (5)
  - PRURITUS [None]
  - GINGIVAL DISORDER [None]
  - PSORIASIS [None]
  - ORAL DISORDER [None]
  - VISUAL IMPAIRMENT [None]
